FAERS Safety Report 5393095-2 (Version None)
Quarter: 2007Q3

REPORT INFORMATION
  Report Type: 
  Country: None (occurrence: None)
  Receive Date: 20070718
  Receipt Date: 20070702
  Transmission Date: 20080115
  Serious: Yes (Other)
  Sender: FDA-Public Use
  Company Number: 100#08#2007-02511

PATIENT
  Age: 75 Year
  Sex: Male

DRUGS (6)
  1. OXALIPLATIN (OXALIPLATIN) (OXALIPLATIN) [Suspect]
     Indication: GASTRIC CANCER
  2. OXALIPLATIN (OXALIPLATIN) (OXALIPLATIN) [Suspect]
     Indication: METASTASES TO LYMPH NODES
  3. FLUOROURACIL [Suspect]
     Indication: GASTRIC CANCER
  4. FLUOROURACIL [Suspect]
     Indication: METASTASES TO LYMPH NODES
  5. FOLINIC ACID (FOLINIC ACID) (CALCIUM FOLINATE) [Suspect]
     Indication: GASTRIC CANCER
  6. FOLINIC ACID (FOLINIC ACID) (CALCIUM FOLINATE) [Suspect]
     Indication: METASTASES TO LYMPH NODES

REACTIONS (3)
  - CHEST X-RAY ABNORMAL [None]
  - DIFFUSE ALVEOLAR DAMAGE [None]
  - LUNG DISORDER [None]
